FAERS Safety Report 7777163-3 (Version None)
Quarter: 2011Q3

REPORT INFORMATION
  Report Type: 
  Country: None (occurrence: None)
  Receive Date: 20110926
  Receipt Date: 20110913
  Transmission Date: 20111222
  Serious: Yes (Other)
  Sender: FDA-Public Use
  Company Number: US-UCBSA-041235

PATIENT
  Sex: Male
  Weight: 75.7 kg

DRUGS (2)
  1. CIMZIA [Suspect]
     Indication: CROHN'S DISEASE
     Dosage: 2 SHOTS. UNIT: MG
     Route: 058
     Dates: start: 20100901
  2. AZATHIOPRINE [Concomitant]
     Indication: CROHN'S DISEASE
     Route: 048
     Dates: start: 20110907, end: 20110910

REACTIONS (14)
  - BURNING SENSATION [None]
  - NAUSEA [None]
  - INTRAOCULAR PRESSURE INCREASED [None]
  - COLD SWEAT [None]
  - EYE SWELLING [None]
  - VISUAL IMPAIRMENT [None]
  - CHROMATURIA [None]
  - THROAT TIGHTNESS [None]
  - TREMOR [None]
  - MUSCULOSKELETAL DISCOMFORT [None]
  - PRURITUS [None]
  - OCULAR HYPERAEMIA [None]
  - EYE HAEMORRHAGE [None]
  - COUGH [None]
